FAERS Safety Report 5921623-4 (Version None)
Quarter: 2008Q4

REPORT INFORMATION
  Report Type: 
  Country: None (occurrence: None)
  Receive Date: 20081016
  Receipt Date: 20081016
  Transmission Date: 20090506
  Serious: Yes (Other)
  Sender: FDA-Public Use
  Company Number: None

PATIENT
  Sex: Male
  Weight: 90.7194 kg

DRUGS (11)
  1. LEXISCAN [Suspect]
     Indication: SCAN MYOCARDIAL PERFUSION
     Dosage: 0.4 MG ONCE OVER 10 SEC INTRAVENOU
     Route: 042
     Dates: start: 20080912
  2. PLAVIX [Concomitant]
  3. METOPROLOL TARTRATE [Concomitant]
  4. HYDROCHLOROTHIAZIDE [Concomitant]
  5. CARDIZEM CD [Concomitant]
  6. CRESTOR [Concomitant]
  7. SPIRIVA [Concomitant]
  8. GABAPENTIN [Concomitant]
  9. LASIX [Concomitant]
  10. TEMAZEPAM [Concomitant]
  11. OXYCODON [Concomitant]

REACTIONS (5)
  - ATRIOVENTRICULAR BLOCK COMPLETE [None]
  - ATRIOVENTRICULAR BLOCK FIRST DEGREE [None]
  - BUNDLE BRANCH BLOCK LEFT [None]
  - BUNDLE BRANCH BLOCK RIGHT [None]
  - SINUS BRADYCARDIA [None]
